FAERS Safety Report 9683045 (Version 3)
Quarter: 2014Q1

REPORT INFORMATION
  Report Type: Spontaneous
  Country: US (occurrence: US)
  Receive Date: 20131112
  Receipt Date: 20140102
  Transmission Date: 20141002
  Serious: No
  Sender: FDA-Public Use
  Company Number: US-PFIZER INC-2013320551

PATIENT
  Sex: Female

DRUGS (2)
  1. NEURONTIN [Suspect]
     Dosage: UNK
  2. VISTARIL [Suspect]
     Indication: ANXIETY
     Dosage: 50 MG, TID PRN
     Route: 048

REACTIONS (1)
  - Dysphonia [Unknown]
